FAERS Safety Report 24934903 (Version 3)
Quarter: 2025Q1

REPORT INFORMATION
  Report Type: Spontaneous
  Country: US (occurrence: US)
  Receive Date: 20250206
  Receipt Date: 20250323
  Transmission Date: 20250409
  Serious: Yes (Hospitalization, Other)
  Sender: KARYOPHARM THERAPEUTICS
  Company Number: US-KARYOPHARM-2025KPT000120

PATIENT

DRUGS (16)
  1. XPOVIO [Suspect]
     Active Substance: SELINEXOR
     Indication: Plasma cell myeloma recurrent
     Route: 048
     Dates: start: 20250125
  2. LEVOTHYROXINE SODIUM [Concomitant]
     Active Substance: LEVOTHYROXINE SODIUM
  3. AMLODIPINE BESYLATE [Concomitant]
     Active Substance: AMLODIPINE BESYLATE
  4. PANTOPRAZOLE SODIUM [Concomitant]
     Active Substance: PANTOPRAZOLE SODIUM
  5. NORCO [Concomitant]
     Active Substance: ACETAMINOPHEN\HYDROCODONE BITARTRATE
  6. TRIAZOLAM [Concomitant]
     Active Substance: TRIAZOLAM
  7. PREGABALIN [Concomitant]
     Active Substance: PREGABALIN
  8. SEVELAMER CARBONATE [Concomitant]
     Active Substance: SEVELAMER CARBONATE
  9. DEXAMETHASONE [Concomitant]
     Active Substance: DEXAMETHASONE
  10. OXYCODONE [Concomitant]
     Active Substance: OXYCODONE
  11. LACTULOSE [Concomitant]
     Active Substance: LACTULOSE
  12. AMOXICILLIN\CLAVULANATE POTASSIUM [Concomitant]
     Active Substance: AMOXICILLIN\CLAVULANATE POTASSIUM
  13. ACYCLOVIR [Concomitant]
     Active Substance: ACYCLOVIR
  14. ONDANSETRON [Concomitant]
     Active Substance: ONDANSETRON
  15. OLANZAPINE [Concomitant]
     Active Substance: OLANZAPINE
  16. POMALYST [Concomitant]
     Active Substance: POMALIDOMIDE

REACTIONS (4)
  - Cerebrovascular accident [Unknown]
  - Pneumonia [Not Recovered/Not Resolved]
  - Rash morbilliform [Unknown]
  - Product use issue [Unknown]

NARRATIVE: CASE EVENT DATE: 20250101
